FAERS Safety Report 9858466 (Version 1)
Quarter: 2014Q1

REPORT INFORMATION
  Report Type: Spontaneous
  Country: US (occurrence: None)
  Receive Date: 20140129
  Receipt Date: 20140129
  Transmission Date: 20141002
  Serious: Yes (Disabling, Other)
  Sender: FDA-Public Use
  Company Number: None

PATIENT
  Age: 55 Year
  Sex: Female
  Weight: 106.14 kg

DRUGS (2)
  1. VICTOZA [Suspect]
     Indication: WEIGHT CONTROL
  2. VICTOZA [Suspect]
     Indication: BLOOD GLUCOSE INCREASED

REACTIONS (3)
  - Urinary retention [None]
  - Cough [None]
  - Respiratory tract congestion [None]
